FAERS Safety Report 7891903-4 (Version None)
Quarter: 2011Q4

REPORT INFORMATION
  Report Type: 
  Country: None (occurrence: None)
  Receive Date: 20111103
  Receipt Date: 20110811
  Transmission Date: 20120403
  Serious: No
  Sender: FDA-Public Use
  Company Number: US-AMGEN-USASP2011040988

PATIENT
  Age: 44 Year
  Sex: Female

DRUGS (2)
  1. ENBREL [Suspect]
     Indication: RHEUMATOID ARTHRITIS
     Dosage: 50 MG, QWK
     Dates: start: 20041014
  2. ORENCIA [Concomitant]
     Dosage: UNK
     Dates: start: 20060101

REACTIONS (6)
  - RHEUMATOID ARTHRITIS [None]
  - NEUROPATHY PERIPHERAL [None]
  - INSOMNIA [None]
  - INFLUENZA LIKE ILLNESS [None]
  - MUSCLE SPASMS [None]
  - ANKYLOSING SPONDYLITIS [None]
